FAERS Safety Report 7532785-X (Version None)
Quarter: 2011Q2

REPORT INFORMATION
  Report Type: 
  Country: None (occurrence: None)
  Receive Date: 20110608
  Receipt Date: 20110601
  Transmission Date: 20111010
  Serious: Yes (Hospitalization)
  Sender: FDA-Public Use
  Company Number: B0722017B

PATIENT
  Sex: Female

DRUGS (3)
  1. LAPATINIB [Suspect]
     Route: 048
     Dates: start: 20101207
  2. PACLITAXEL [Suspect]
     Dosage: 90MGM2 WEEKLY
     Route: 042
     Dates: start: 20101207
  3. BISOPROLOL FUMARATE [Concomitant]
     Indication: HYPERTENSION
     Dates: start: 20091201

REACTIONS (3)
  - LOSS OF CONTROL OF LEGS [None]
  - MUSCULAR WEAKNESS [None]
  - DIZZINESS [None]
